FAERS Safety Report 17442629 (Version 1)
Quarter: 2020Q1

REPORT INFORMATION
  Report Type: Report from Study
  Country: None (occurrence: DE)
  Receive Date: 20200220
  Receipt Date: 20200220
  Transmission Date: 20200409
  Serious: Yes (Death, Hospitalization)
  Sender: FDA-Public Use
  Company Number: DE-ABBVIE-20K-062-3284639-00

PATIENT
  Sex: Female

DRUGS (1)
  1. DUODOPA [Suspect]
     Active Substance: CARBIDOPA\LEVODOPA
     Indication: PARKINSON^S DISEASE
     Dosage: MD 6 ML CRD 3.8 ML/H CRN 2 ML/H ED 2.5 ML?20 MG/ML 5 MG/ML
     Route: 050
     Dates: start: 20181029, end: 20200215

REACTIONS (5)
  - Pneumonitis [Unknown]
  - Pneumonia [Fatal]
  - Dysphagia [Not Recovered/Not Resolved]
  - Device dislocation [Recovered/Resolved]
  - Pneumonitis [Recovered/Resolved]

NARRATIVE: CASE EVENT DATE: 2019
